FAERS Safety Report 20609978 (Version 1)
Quarter: 2022Q1

REPORT INFORMATION
  Report Type: Report from Study
  Country: US (occurrence: US)
  Receive Date: 20220318
  Receipt Date: 20220318
  Transmission Date: 20220424
  Serious: No
  Sender: FDA-Public Use
  Company Number: US-LUNDBECK-DKLU3045693

PATIENT
  Age: 28 Year
  Sex: Female

DRUGS (2)
  1. VYEPTI [Suspect]
     Active Substance: EPTINEZUMAB-JJMR
     Indication: Migraine
     Route: 041
     Dates: start: 20220221
  2. TRAMADOL [Concomitant]
     Active Substance: TRAMADOL
     Indication: Headache
     Route: 065

REACTIONS (2)
  - Migraine [Unknown]
  - Headache [Unknown]
